FAERS Safety Report 9613928 (Version 7)
Quarter: 2014Q3

REPORT INFORMATION
  Report Type: Spontaneous
  Country: GB (occurrence: GB)
  Receive Date: 20131010
  Receipt Date: 20140827
  Transmission Date: 20150326
  Serious: Yes (Hospitalization, Other)
  Sender: FDA-Public Use
  Company Number: GB-AMGEN-GBRSP2012064495

PATIENT
  Age: 76 Year
  Sex: Female
  Weight: 165 kg

DRUGS (5)
  1. PROLIA [Suspect]
     Active Substance: DENOSUMAB
     Indication: OSTEOPOROSIS
     Dosage: 60 MG, Q6MO
     Route: 058
     Dates: start: 20120820
  2. COCODAMOL [Concomitant]
     Active Substance: ACETAMINOPHEN\CODEINE PHOSPHATE
     Indication: ANALGESIC THERAPY
     Dosage: 1 DF 1/2 DAYS, UNK
     Route: 048
  3. TRAXAM [Concomitant]
     Dosage: UNK
  4. PROLIA [Suspect]
     Active Substance: DENOSUMAB
     Dosage: 60 MG, Q6MO
     Route: 058
     Dates: start: 20120820
  5. FULTIUM [Concomitant]
     Indication: VITAMIN SUPPLEMENTATION
     Dosage: 800 IU, UNK
     Route: 048

REACTIONS (40)
  - Tongue ulceration [Not Recovered/Not Resolved]
  - Tachycardia [Unknown]
  - Tongue atrophy [Unknown]
  - Palpitations [Not Recovered/Not Resolved]
  - Dyspnoea [Not Recovered/Not Resolved]
  - Emotional distress [Recovered/Resolved]
  - Mastication disorder [Recovered/Resolved]
  - Investigation [Unknown]
  - Mouth ulceration [Not Recovered/Not Resolved]
  - Skin infection [Not Recovered/Not Resolved]
  - Erythema [Not Recovered/Not Resolved]
  - Lichenification [Unknown]
  - Lip pain [Not Recovered/Not Resolved]
  - Dry eye [Not Recovered/Not Resolved]
  - Lower respiratory tract infection [Not Recovered/Not Resolved]
  - Oral herpes [Not Recovered/Not Resolved]
  - Pain in jaw [Not Recovered/Not Resolved]
  - Hypokinesia [Unknown]
  - Eye pain [Not Recovered/Not Resolved]
  - Pleurisy [Not Recovered/Not Resolved]
  - Dermatitis [Unknown]
  - Bone pain [Not Recovered/Not Resolved]
  - Pain [Not Recovered/Not Resolved]
  - Myalgia [Not Recovered/Not Resolved]
  - Neck mass [Not Recovered/Not Resolved]
  - Insomnia [Recovered/Resolved]
  - Oral pain [Unknown]
  - Glossitis [Not Recovered/Not Resolved]
  - Dry mouth [Not Recovered/Not Resolved]
  - General physical health deterioration [Unknown]
  - Skin irritation [Not Recovered/Not Resolved]
  - Chapped lips [Not Recovered/Not Resolved]
  - Impaired healing [Not Recovered/Not Resolved]
  - Back pain [Unknown]
  - Discomfort [Unknown]
  - Blood pressure increased [Unknown]
  - Eye disorder [Not Recovered/Not Resolved]
  - Facial pain [Not Recovered/Not Resolved]
  - Pain of skin [Not Recovered/Not Resolved]
  - Musculoskeletal pain [Not Recovered/Not Resolved]

NARRATIVE: CASE EVENT DATE: 2012
